FAERS Safety Report 12732877 (Version 1)
Quarter: 2016Q3

REPORT INFORMATION
  Report Type: Spontaneous
  Country: US (occurrence: US)
  Receive Date: 20160912
  Receipt Date: 20160912
  Transmission Date: 20161109
  Serious: Yes (Hospitalization)
  Sender: FDA-Public Use
  Company Number: US-ACTELION-A-US2016-141710

PATIENT
  Age: 14 Year
  Sex: Female

DRUGS (12)
  1. LAMICTAL [Concomitant]
     Active Substance: LAMOTRIGINE
     Dosage: 7 TABLETS, VIA G-TUBE
     Dates: start: 20160816
  2. TRILEPTAL [Concomitant]
     Active Substance: OXCARBAZEPINE
     Dosage: 1 TAB, DAILY
     Dates: start: 20140120
  3. ANAFRANIL [Concomitant]
     Active Substance: CLOMIPRAMINE HYDROCHLORIDE
     Dosage: 1 CAP, G-TUBE
     Dates: start: 20160816
  4. KEPPRA [Concomitant]
     Active Substance: LEVETIRACETAM
     Dosage: 1 TAB, G-TUBE
     Dates: start: 20160816
  5. FEXOFENADINE [Concomitant]
     Active Substance: FEXOFENADINE\FEXOFENADINE HYDROCHLORIDE
     Dosage: 10 ML, G-TUBE
     Dates: start: 20160816
  6. ZAVESCA [Suspect]
     Active Substance: MIGLUSTAT
     Indication: GAUCHER^S DISEASE
     Dosage: 200 MG EVERY AM, 100 MG EVERY PM
     Route: 048
     Dates: start: 20100510
  7. SINGULAIR [Concomitant]
     Active Substance: MONTELUKAST SODIUM
     Dosage: 1 TAB, G-TUBE
     Dates: start: 20140715
  8. METRONIDAZOLE. [Concomitant]
     Active Substance: METRONIDAZOLE
     Dosage: 1 APPLICATION
     Route: 065
     Dates: start: 20060816
  9. ALDACTONE [Concomitant]
     Active Substance: SPIRONOLACTONE
     Dosage: 12.5 MG, G-TUBE
  10. ZETIA [Concomitant]
     Active Substance: EZETIMIBE
     Dosage: 5 MG, G-TUBE
     Dates: start: 20140917
  11. NASONEX [Concomitant]
     Active Substance: MOMETASONE FUROATE
     Dosage: 1 SPRAY
     Route: 045
     Dates: start: 20150220
  12. PEPCID [Concomitant]
     Active Substance: FAMOTIDINE
     Dosage: 1 TAB, G-TUBE
     Dates: start: 20140917

REACTIONS (1)
  - Seizure [Unknown]
